FAERS Safety Report 11590535 (Version 1)
Quarter: 2015Q4

REPORT INFORMATION
  Report Type: Spontaneous
  Country: JP (occurrence: JP)
  Receive Date: 20151002
  Receipt Date: 20151002
  Transmission Date: 20160304
  Serious: Yes (Hospitalization, Other)
  Sender: FDA-Public Use
  Company Number: JP-GLAXOSMITHKLINE-JP2015JPN138552

PATIENT
  Age: 34 Year
  Sex: Female

DRUGS (1)
  1. LAMICTAL [Suspect]
     Active Substance: LAMOTRIGINE
     Indication: EPILEPSY
     Route: 048

REACTIONS (9)
  - Pain [Unknown]
  - Toxic epidermal necrolysis [Unknown]
  - Generalised erythema [Unknown]
  - Enanthema [Unknown]
  - Decreased appetite [Unknown]
  - Pyrexia [Unknown]
  - Lymphadenopathy [Unknown]
  - Malaise [Unknown]
  - Oropharyngeal pain [Unknown]
